FAERS Safety Report 9377352 (Version 2)
Quarter: 2013Q3

REPORT INFORMATION
  Report Type: Spontaneous
  Country: US (occurrence: US)
  Receive Date: 20130701
  Receipt Date: 20130807
  Transmission Date: 20140515
  Serious: Yes (Other)
  Sender: FDA-Public Use
  Company Number: US-ASTRAZENECA-2013SE48678

PATIENT
  Age: 72 Year
  Sex: Male
  Weight: 90.7 kg

DRUGS (7)
  1. BRILINTA [Suspect]
     Indication: STENT PLACEMENT
     Route: 048
     Dates: start: 201302
  2. ASPIRIN [Suspect]
     Indication: ADJUVANT THERAPY
     Route: 065
     Dates: start: 201302
  3. QUINAPRIL [Suspect]
     Route: 065
  4. ONE OTHER BLOOD PRESSURE MEDICATION [Suspect]
     Indication: BLOOD PRESSURE ABNORMAL
     Route: 065
  5. METFORMIN [Concomitant]
     Indication: DIABETES MELLITUS
     Dates: start: 201304
  6. ATORVASTATIN [Concomitant]
     Indication: LOW DENSITY LIPOPROTEIN INCREASED
  7. EXFORGE [Concomitant]
     Indication: BLOOD PRESSURE ABNORMAL
     Dosage: 10/160 MG BID
     Dates: start: 201302

REACTIONS (9)
  - Thrombosis [Unknown]
  - Eye haemorrhage [Unknown]
  - Haemorrhage [Not Recovered/Not Resolved]
  - Anger [Unknown]
  - Adverse event [Unknown]
  - Haemorrhagic diathesis [Unknown]
  - Confusional state [Unknown]
  - Epistaxis [Recovered/Resolved]
  - Intentional drug misuse [Unknown]
